FAERS Safety Report 24561300 (Version 1)
Quarter: 2024Q4

REPORT INFORMATION
  Report Type: Spontaneous
  Country: US (occurrence: None)
  Receive Date: 20241029
  Receipt Date: 20241029
  Transmission Date: 20250115
  Serious: Yes (Disabling)
  Sender: Public
  Company Number: None

PATIENT
  Age: 59 Year
  Sex: Female
  Weight: 54.9 kg

DRUGS (9)
  1. PROLIA [Suspect]
     Active Substance: DENOSUMAB
     Indication: Osteoporosis
     Dosage: OTHER QUANTITY : 1 INJECTION(S);?OTHER FREQUENCY : 2 A YEAR;?
     Route: 030
     Dates: start: 20241003, end: 20241004
  2. SYNTHROID [Concomitant]
  3. LYRICA [Concomitant]
  4. Vitamin D [Concomitant]
  5. VITAMIN K [Concomitant]
     Active Substance: PHYTONADIONE
  6. Vitamin C [Concomitant]
  7. B-12 Shots Monthly [Concomitant]
  8. Luetin [Concomitant]
  9. CALCIUM [Concomitant]
     Active Substance: CALCIUM

REACTIONS (17)
  - Rash [None]
  - Secretion discharge [None]
  - Urticaria [None]
  - Skin exfoliation [None]
  - Purpura [None]
  - Drug hypersensitivity [None]
  - Scar [None]
  - Tinnitus [None]
  - Ear pain [None]
  - Pain in jaw [None]
  - Headache [None]
  - Bone pain [None]
  - Gingival pain [None]
  - Mastication disorder [None]
  - Dyspepsia [None]
  - Hypoacusis [None]
  - Fear of disease [None]

NARRATIVE: CASE EVENT DATE: 20241003
